FAERS Safety Report 21211934 (Version 1)
Quarter: 2022Q3

REPORT INFORMATION
  Report Type: Spontaneous
  Country: FR (occurrence: FR)
  Receive Date: 20220815
  Receipt Date: 20220815
  Transmission Date: 20221026
  Serious: Yes (Disabling, Other)
  Sender: FDA-Public Use
  Company Number: FR-SERVIER-S22007175

PATIENT

DRUGS (6)
  1. ZYPREXA [Suspect]
     Active Substance: OLANZAPINE
     Indication: Product used for unknown indication
     Dosage: UNK UNK, UNKNOWN
     Route: 064
     Dates: start: 20110507, end: 20120203
  2. ZYPREXA [Suspect]
     Active Substance: OLANZAPINE
     Indication: Product used for unknown indication
     Dosage: UNK UNK, UNKNOWN
     Route: 064
     Dates: start: 20110507, end: 20120203
  3. TIANEPTINE [Suspect]
     Active Substance: TIANEPTINE
     Indication: Product used for unknown indication
     Dosage: UNK UNK, DAILY
     Route: 064
  4. TIANEPTINE [Suspect]
     Active Substance: TIANEPTINE
     Indication: Product used for unknown indication
     Dosage: UNK UNK, DAILY
     Route: 064
  5. ALPRAZOLAM [Suspect]
     Active Substance: ALPRAZOLAM
     Indication: Product used for unknown indication
     Dosage: 2 MG, DAILY
     Route: 064
     Dates: start: 20110507, end: 20120203
  6. ALPRAZOLAM [Suspect]
     Active Substance: ALPRAZOLAM
     Indication: Product used for unknown indication
     Dosage: 2 MG, DAILY
     Route: 064
     Dates: start: 20110507, end: 20120203

REACTIONS (9)
  - Photosensitivity reaction [Not Recovered/Not Resolved]
  - Tremor neonatal [Recovered/Resolved]
  - Cognitive disorder [Not Recovered/Not Resolved]
  - Motor dysfunction [Recovered/Resolved]
  - Cerebral atrophy [Not Recovered/Not Resolved]
  - Psychotic disorder [Not Recovered/Not Resolved]
  - Feeding disorder [Recovered/Resolved]
  - Hypertonia [Recovered/Resolved]
  - Foetal exposure during pregnancy [Recovered/Resolved]

NARRATIVE: CASE EVENT DATE: 20120203
